FAERS Safety Report 8222436-3 (Version None)
Quarter: 2012Q1

REPORT INFORMATION
  Report Type: 
  Country: None (occurrence: None)
  Receive Date: 20120320
  Receipt Date: 20120307
  Transmission Date: 20120608
  Serious: Yes (Other)
  Sender: FDA-Public Use
  Company Number: US-ELI_LILLY_AND_COMPANY-US201203002701

PATIENT
  Sex: Male

DRUGS (1)
  1. HUMATROPE [Suspect]
     Indication: HYPOPITUITARISM
     Dosage: 4 CLICKS, QD, FROM 12ML CARTRIDGE
     Dates: start: 20060101

REACTIONS (3)
  - SCOLIOSIS [None]
  - WEIGHT DECREASED [None]
  - VOMITING [None]
